FAERS Safety Report 5280812-5 (Version None)
Quarter: 2007Q1

REPORT INFORMATION
  Report Type: 
  Country: None (occurrence: None)
  Receive Date: 20070329
  Receipt Date: 20070320
  Transmission Date: 20070707
  Serious: No
  Sender: FDA-Public Use
  Company Number: JP-PFIZER INC-2007019423

PATIENT
  Age: 87 Year
  Sex: Female

DRUGS (6)
  1. NORVASC [Suspect]
     Indication: HYPERTENSION
     Dosage: DAILY DOSE:2.5MG
     Route: 048
  2. BLADDERON [Suspect]
     Indication: POLLAKIURIA
     Dosage: DAILY DOSE:200MG
     Route: 048
     Dates: start: 20070207, end: 20070307
  3. VOLTAREN [Suspect]
     Indication: PAIN
     Dosage: DAILY DOSE:75MG
     Route: 048
     Dates: start: 20070207, end: 20070307
  4. MEDICON [Suspect]
     Indication: COUGH
     Dosage: DAILY DOSE:45MG
     Route: 048
     Dates: start: 20070301, end: 20070306
  5. CLARITHROMYCIN [Suspect]
     Indication: INFECTION
     Dosage: DAILY DOSE:200MG
     Route: 048
     Dates: start: 20070301, end: 20070306
  6. ALL OTHER THERAPEUTIC PRODUCTS [Concomitant]

REACTIONS (2)
  - ALANINE AMINOTRANSFERASE INCREASED [None]
  - ASPARTATE AMINOTRANSFERASE INCREASED [None]
